FAERS Safety Report 9153580 (Version 2)
Quarter: 2013Q1

REPORT INFORMATION
  Report Type: Spontaneous
  Country: ES (occurrence: None)
  Receive Date: 20130204
  Receipt Date: 20130327
  Transmission Date: 20140127
  Serious: Yes (Death, Congenital Anomaly, Other)
  Sender: FDA-Public Use
  Company Number: 2013POI058100002

PATIENT
  Sex: Female

DRUGS (3)
  1. AZASAN [Suspect]
     Indication: PROPHYLAXIS AGAINST TRANSPLANT REJECTION
  2. CYCLOSPORINE A [Suspect]
     Indication: PROPHYLAXIS AGAINST TRANSPLANT REJECTION
  3. PREDNISONE [Suspect]
     Indication: ADJUVANT THERAPY

REACTIONS (5)
  - Abortion spontaneous [None]
  - Premature baby [None]
  - Pre-eclampsia [None]
  - Foetal growth restriction [None]
  - Maternal drugs affecting foetus [None]
